FAERS Safety Report 4880754-0 (Version None)
Quarter: 2006Q1

REPORT INFORMATION
  Report Type: 
  Country: None (occurrence: None)
  Receive Date: 20060111
  Receipt Date: 20051025
  Transmission Date: 20060701
  Serious: No
  Sender: FDA-Public Use
  Company Number: 2005S1000237

PATIENT
  Age: 62 Year

DRUGS (4)
  1. CUBICIN [Suspect]
     Indication: OSTEOMYELITIS
     Dosage: 4 MG/KGQ24H;IV
     Route: 042
     Dates: start: 20051001, end: 20051021
  2. VANCOMYCIN [Concomitant]
  3. DARVOCET [Concomitant]
  4. PAIN MEDICATION [Concomitant]

REACTIONS (3)
  - ALANINE AMINOTRANSFERASE INCREASED [None]
  - ASPARTATE AMINOTRANSFERASE INCREASED [None]
  - BLOOD CREATINE PHOSPHOKINASE INCREASED [None]
